FAERS Safety Report 20381420 (Version 1)
Quarter: 2022Q1

REPORT INFORMATION
  Report Type: Spontaneous
  Country: US (occurrence: US)
  Receive Date: 20220127
  Receipt Date: 20220127
  Transmission Date: 20220423
  Serious: Yes (Other)
  Sender: FDA-Public Use
  Company Number: US-WOCKHARDT BIO AG-2022WBA000009

PATIENT
  Age: 29 Year
  Sex: Male

DRUGS (3)
  1. HYDROXYZINE [Suspect]
     Active Substance: HYDROXYZINE HYDROCHLORIDE
     Indication: Insomnia
     Dosage: 100 MILLIGRAM, QID
     Route: 065
  2. OLANZAPINE [Concomitant]
     Active Substance: OLANZAPINE
     Indication: Product used for unknown indication
     Dosage: 20 MILLIGRAM
     Route: 065
  3. SERTRALINE [Concomitant]
     Active Substance: SERTRALINE HYDROCHLORIDE
     Indication: Product used for unknown indication
     Dosage: 200 MILLIGRAM
     Route: 065

REACTIONS (2)
  - Priapism [Unknown]
  - Intentional overdose [Unknown]
